FAERS Safety Report 14233900 (Version 4)
Quarter: 2018Q1

REPORT INFORMATION
  Report Type: Spontaneous
  Country: FR (occurrence: FR)
  Receive Date: 20171128
  Receipt Date: 20180301
  Transmission Date: 20180508
  Serious: Yes (Other)
  Sender: FDA-Public Use
  Company Number: FR-BAXTER-2017BAX039379

PATIENT
  Age: 62 Year
  Sex: Male

DRUGS (42)
  1. HOLOXAN 2000 MG, POUDRE POUR USAGE PARENT?RAL [Suspect]
     Active Substance: IFOSFAMIDE
     Indication: CENTRAL NERVOUS SYSTEM LYMPHOMA
     Dosage: R-ICE PROTOCOL, FIRST COURSE
     Route: 042
     Dates: start: 20150610
  2. HOLOXAN 2000 MG, POUDRE POUR USAGE PARENT?RAL [Suspect]
     Active Substance: IFOSFAMIDE
     Indication: DIFFUSE LARGE B-CELL LYMPHOMA
     Dosage: R-ICE PROTOCOL, SECOND COURSE
     Route: 042
     Dates: start: 20150709
  3. METHOTREXATE. [Suspect]
     Active Substance: METHOTREXATE
     Dosage: MPVA PROTOCOL, THIRD COURSE
     Route: 042
     Dates: start: 20141126
  4. CARBOPLATIN. [Suspect]
     Active Substance: CARBOPLATIN
     Indication: CENTRAL NERVOUS SYSTEM LYMPHOMA
     Dosage: MPVA PROTOCOL, FIRST COURSE
     Route: 042
     Dates: start: 20150611
  5. ENDOXAN 1000 MG, POUDRE POUR SOLUTIONINJECTABLE [Suspect]
     Active Substance: CYCLOPHOSPHAMIDE
     Indication: CENTRAL NERVOUS SYSTEM LYMPHOMA
     Dosage: DAY 3 TO DAY 2, DOSE ALSO REPORTED AS 5400 MG
     Route: 042
     Dates: start: 201508
  6. ENDOXAN 1000 MG, POUDRE POUR SOLUTIONINJECTABLE [Suspect]
     Active Substance: CYCLOPHOSPHAMIDE
     Indication: DIFFUSE LARGE B-CELL LYMPHOMA
  7. CYTARABINE. [Suspect]
     Active Substance: CYTARABINE
     Dosage: MPVA PROTOCOL
     Route: 042
     Dates: start: 20150610
  8. NEUPOGEN [Suspect]
     Active Substance: FILGRASTIM
     Dosage: MPVA PROTOCOL, SECOND COURSE
     Route: 051
     Dates: start: 20141030
  9. NEULASTA [Suspect]
     Active Substance: PEGFILGRASTIM
     Dosage: MPVA PROTOCOL, SECOND COURSE
     Route: 058
     Dates: start: 20150710
  10. THIOTEPA. [Suspect]
     Active Substance: THIOTEPA
     Indication: CENTRAL NERVOUS SYSTEM LYMPHOMA
     Dosage: FROM DAY 9 TO DAY 7
     Route: 042
     Dates: start: 201508
  11. VINCRISTINE [Suspect]
     Active Substance: VINCRISTINE
     Dosage: MPVA PROTOCOL, FOURTH COURSE
     Route: 042
     Dates: start: 20150105
  12. CYTARABINE. [Suspect]
     Active Substance: CYTARABINE
     Dosage: MPVA PROTOCOL
     Route: 042
     Dates: start: 20141003
  13. CARBOPLATIN. [Suspect]
     Active Substance: CARBOPLATIN
     Indication: DIFFUSE LARGE B-CELL LYMPHOMA
     Dosage: MPVA PROTOCOL, SECOND COURSE
     Route: 042
     Dates: start: 20150709
  14. NEULASTA [Suspect]
     Active Substance: PEGFILGRASTIM
     Indication: PROPHYLAXIS
     Dosage: MPVA PROTOCOL, FIRST COURSE
     Route: 058
     Dates: start: 20150610
  15. ARANESP [Suspect]
     Active Substance: DARBEPOETIN ALFA
     Indication: FEBRILE BONE MARROW APLASIA
     Route: 065
     Dates: start: 2015
  16. UROMITEXAN 5 G/50 ML, SOLUTION INJECTABLE POUR PERFUSION EN FLACON [Suspect]
     Active Substance: MESNA
     Indication: DRUG TOXICITY PROPHYLAXIS
     Dosage: R-ICE PROTOCOL, FIRST COURSE
     Route: 042
     Dates: start: 20150610
  17. NATULAN [Suspect]
     Active Substance: PROCARBAZINE HYDROCHLORIDE
     Indication: CENTRAL NERVOUS SYSTEM LYMPHOMA
     Dosage: MPVA PROTOCOL, FIRST COURSE
     Route: 048
     Dates: start: 20141003
  18. NATULAN [Suspect]
     Active Substance: PROCARBAZINE HYDROCHLORIDE
     Dosage: MPVA PROTOCOL, THIRD COURSE
     Route: 048
     Dates: start: 20141114
  19. VINCRISTINE [Suspect]
     Active Substance: VINCRISTINE
     Indication: CENTRAL NERVOUS SYSTEM LYMPHOMA
     Dosage: MPVA PROTOCOL, FIRST COURSE
     Route: 042
     Dates: start: 20141003
  20. NEUPOGEN [Suspect]
     Active Substance: FILGRASTIM
     Indication: PROPHYLAXIS
     Dosage: MPVA PROTOCOL, FIRST COURSE
     Route: 051
     Dates: start: 20141003
  21. BUSULFAN. [Suspect]
     Active Substance: BUSULFAN
     Indication: CENTRAL NERVOUS SYSTEM LYMPHOMA
     Dosage: FROM DAY 6 TO DAY 5
     Route: 042
     Dates: start: 201508
  22. METHOTREXATE. [Suspect]
     Active Substance: METHOTREXATE
     Indication: CENTRAL NERVOUS SYSTEM LYMPHOMA
     Dosage: MPVA PROTOCOL, FIRST COURSE
     Route: 042
     Dates: start: 20141003
  23. METHOTREXATE. [Suspect]
     Active Substance: METHOTREXATE
     Indication: DIFFUSE LARGE B-CELL LYMPHOMA
     Dosage: MPVA PROTOCOL, SECOND COURSE
     Route: 042
     Dates: start: 20141030
  24. METHOTREXATE. [Suspect]
     Active Substance: METHOTREXATE
     Dosage: MPVA PROTOCOL, FOURTH COURSE
     Route: 042
     Dates: start: 20150105
  25. VINCRISTINE [Suspect]
     Active Substance: VINCRISTINE
     Indication: DIFFUSE LARGE B-CELL LYMPHOMA
     Dosage: MPVA PROTOCOL, SECOND COURSE
     Route: 042
     Dates: start: 20141030
  26. VINCRISTINE [Suspect]
     Active Substance: VINCRISTINE
     Dosage: MPVA PROTOCOL, THIRD COURSE
     Route: 042
     Dates: start: 20141114
  27. NEUPOGEN [Suspect]
     Active Substance: FILGRASTIM
     Dosage: MPVA PROTOCOL, FOURTH COURSE
     Route: 051
     Dates: start: 20150105
  28. RITUXIMAB. [Suspect]
     Active Substance: RITUXIMAB
     Indication: CENTRAL NERVOUS SYSTEM LYMPHOMA
     Dosage: R-ICE PROTOCOL
     Route: 042
     Dates: start: 20150610, end: 20150610
  29. ZARZIO [Suspect]
     Active Substance: FILGRASTIM
     Indication: FEBRILE BONE MARROW APLASIA
     Route: 065
     Dates: start: 201507
  30. CELLTOP 100 MG/5 ML, SOLUTION INJECTABLE POUR PERFUSION [Suspect]
     Active Substance: ETOPOSIDE
     Indication: CENTRAL NERVOUS SYSTEM LYMPHOMA
     Dosage: R-ICE PROTOCOL, FIRST COURSE,
     Route: 042
     Dates: start: 20150610, end: 20150611
  31. CELLTOP 100 MG/5 ML, SOLUTION INJECTABLE POUR PERFUSION [Suspect]
     Active Substance: ETOPOSIDE
     Indication: DIFFUSE LARGE B-CELL LYMPHOMA
     Dosage: R-ICE PROTOCOL, SECOND COURSE,
     Route: 042
     Dates: start: 20150708, end: 20150709
  32. NATULAN [Suspect]
     Active Substance: PROCARBAZINE HYDROCHLORIDE
     Indication: DIFFUSE LARGE B-CELL LYMPHOMA
     Dosage: MPVA PROTOCOL, SECOND COURSE
     Route: 048
     Dates: start: 20141030
  33. NATULAN [Suspect]
     Active Substance: PROCARBAZINE HYDROCHLORIDE
     Dosage: MPVA PROTOCOL, FOURTH COURSE
     Route: 048
     Dates: start: 20150105
  34. CYTARABINE. [Suspect]
     Active Substance: CYTARABINE
     Indication: CENTRAL NERVOUS SYSTEM LYMPHOMA
     Dosage: MPVA PROTOCOL
     Route: 042
     Dates: start: 20150204
  35. CYTARABINE. [Suspect]
     Active Substance: CYTARABINE
     Indication: DIFFUSE LARGE B-CELL LYMPHOMA
     Dosage: MPVA PROTOCOL
     Route: 042
     Dates: start: 20150205
  36. CYTARABINE. [Suspect]
     Active Substance: CYTARABINE
     Dosage: MPVA PROTOCOL
     Route: 042
     Dates: start: 20150611
  37. THIOTEPA. [Suspect]
     Active Substance: THIOTEPA
     Indication: DIFFUSE LARGE B-CELL LYMPHOMA
  38. UROMITEXAN 5 G/50 ML, SOLUTION INJECTABLE POUR PERFUSION EN FLACON [Suspect]
     Active Substance: MESNA
     Dosage: R-ICE PROTOCOL, SECOND COURSE
     Route: 042
     Dates: start: 20150710
  39. NEUPOGEN [Suspect]
     Active Substance: FILGRASTIM
     Dosage: MPVA PROTOCOL, THIRD COURSE
     Route: 051
     Dates: start: 20141114
  40. RITUXIMAB. [Suspect]
     Active Substance: RITUXIMAB
     Indication: DIFFUSE LARGE B-CELL LYMPHOMA
  41. BUSULFAN. [Suspect]
     Active Substance: BUSULFAN
     Indication: DIFFUSE LARGE B-CELL LYMPHOMA
     Dosage: ON DAY 4
     Route: 042
  42. G-CSF [Suspect]
     Active Substance: GRANULOCYTE COLONY-STIMULATING FACTOR NOS
     Indication: FEBRILE BONE MARROW APLASIA
     Route: 065
     Dates: start: 201508

REACTIONS (8)
  - Febrile bone marrow aplasia [Unknown]
  - Atrial fibrillation [Unknown]
  - Angiodysplasia [Not Recovered/Not Resolved]
  - Pulmonary embolism [Unknown]
  - Tachyarrhythmia [Unknown]
  - Disease recurrence [Unknown]
  - Venous thrombosis [Unknown]
  - Diarrhoea [Unknown]

NARRATIVE: CASE EVENT DATE: 201507
